FAERS Safety Report 17819568 (Version 2)
Quarter: 2020Q2

REPORT INFORMATION
  Report Type: Report from Study
  Country: US (occurrence: US)
  Receive Date: 20200523
  Receipt Date: 20200627
  Transmission Date: 20200714
  Serious: Yes (Other)
  Sender: FDA-Public Use
  Company Number: NVSC2020US136657

PATIENT
  Sex: Female

DRUGS (1)
  1. GILENYA [Suspect]
     Active Substance: FINGOLIMOD HYDROCHLORIDE
     Indication: MULTIPLE SCLEROSIS
     Dosage: 0.5 MG, QD
     Route: 048

REACTIONS (15)
  - Multiple sclerosis [Unknown]
  - Pyrexia [Unknown]
  - Vomiting [Unknown]
  - Hypoaesthesia [Unknown]
  - Neuralgia [Unknown]
  - Influenza [Unknown]
  - Vision blurred [Unknown]
  - Multiple sclerosis relapse [Unknown]
  - Balance disorder [Unknown]
  - Visual impairment [Unknown]
  - Gait disturbance [Unknown]
  - Malaise [Unknown]
  - Central nervous system lesion [Unknown]
  - Irritability [Unknown]
  - Nausea [Unknown]
